FAERS Safety Report 8078098-1 (Version None)
Quarter: 2012Q1

REPORT INFORMATION
  Report Type: 
  Country: None (occurrence: None)
  Receive Date: 20120127
  Receipt Date: 20110104
  Transmission Date: 20120608
  Serious: No
  Sender: FDA-Public Use
  Company Number: US-ABBOTT-10P-163-0683212-00

PATIENT
  Age: 63 Year
  Sex: Female

DRUGS (11)
  1. METHOTREXATE [Concomitant]
     Indication: PRODUCT USED FOR UNKNOWN INDICATION
  2. CALTRATE [Concomitant]
     Indication: PRODUCT USED FOR UNKNOWN INDICATION
  3. FISH OIL [Concomitant]
     Indication: PRODUCT USED FOR UNKNOWN INDICATION
  4. HUMIRA [Suspect]
     Indication: RHEUMATOID ARTHRITIS
     Dates: start: 20100620, end: 20101201
  5. LOSARTAN POTASSIUM [Concomitant]
     Indication: RENAL DISORDER
  6. FOLIC ACID [Concomitant]
     Indication: PRODUCT USED FOR UNKNOWN INDICATION
  7. ARAZA LEFLUNAMIDE [Concomitant]
     Indication: PAIN
  8. METFORMIN HCL [Concomitant]
     Indication: DIABETES MELLITUS
  9. IRON [Concomitant]
     Indication: ANAEMIA
  10. PREDNISONE [Concomitant]
     Indication: INFLAMMATION
  11. LEVOTHYROXINE SODIUM [Concomitant]
     Indication: HYPOTHYROIDISM

REACTIONS (8)
  - NODULE [None]
  - ARTHRALGIA [None]
  - MOBILITY DECREASED [None]
  - SWELLING [None]
  - OEDEMA PERIPHERAL [None]
  - PAIN IN EXTREMITY [None]
  - NERVE COMPRESSION [None]
  - DIABETIC NEUROPATHY [None]
